FAERS Safety Report 17880483 (Version 1)
Quarter: 2020Q2

REPORT INFORMATION
  Report Type: Spontaneous
  Country: US (occurrence: US)
  Receive Date: 20200609
  Receipt Date: 20200609
  Transmission Date: 20200714
  Serious: Yes (Hospitalization)
  Sender: FDA-Public Use
  Company Number: None

PATIENT
  Sex: Female

DRUGS (10)
  1. SILDENAFIL 20MG [Suspect]
     Active Substance: SILDENAFIL
     Indication: PULMONARY ARTERIAL HYPERTENSION
     Route: 048
     Dates: start: 20190114
  2. BUDESONIDE. [Concomitant]
     Active Substance: BUDESONIDE
  3. CETIRIZINE [Concomitant]
     Active Substance: CETIRIZINE HYDROCHLORIDE
  4. LIDO/PRILOCN CRE [Concomitant]
  5. MONTELUKAST [Concomitant]
     Active Substance: MONTELUKAST SODIUM
  6. TOBRAMYCIN. [Concomitant]
     Active Substance: TOBRAMYCIN
  7. QVAR [Concomitant]
     Active Substance: BECLOMETHASONE DIPROPIONATE
  8. ATROVENT HFA [Concomitant]
     Active Substance: IPRATROPIUM BROMIDE
  9. AMOX/K CLAV [Concomitant]
     Active Substance: AMOXICILLIN\CLAVULANATE POTASSIUM
  10. PREDNISOLONE. [Concomitant]
     Active Substance: PREDNISOLONE

REACTIONS (1)
  - Hospitalisation [None]
